FAERS Safety Report 7657805-3 (Version None)
Quarter: 2011Q3

REPORT INFORMATION
  Report Type: 
  Country: None (occurrence: None)
  Receive Date: 20110805
  Receipt Date: 20091202
  Transmission Date: 20111222
  Serious: No
  Sender: FDA-Public Use
  Company Number: US-BIOGENIDEC-2007BI010895

PATIENT
  Sex: Female

DRUGS (3)
  1. TYSABRI [Suspect]
     Indication: MULTIPLE SCLEROSIS
     Route: 042
     Dates: start: 20050209, end: 20050209
  2. TYSABRI [Suspect]
     Route: 042
     Dates: start: 20071217, end: 20101028
  3. TYSABRI [Suspect]
     Route: 042
     Dates: start: 20061204, end: 20061204

REACTIONS (27)
  - EPSTEIN-BARR VIRUS INFECTION [None]
  - FORMICATION [None]
  - PAIN [None]
  - HEADACHE [None]
  - COGNITIVE DISORDER [None]
  - SENSATION OF HEAVINESS [None]
  - ALOPECIA [None]
  - AMNESIA [None]
  - MULTIPLE SCLEROSIS RELAPSE [None]
  - PARAESTHESIA [None]
  - VOMITING [None]
  - BAND SENSATION [None]
  - FEELING COLD [None]
  - VERTIGO [None]
  - BURNING SENSATION [None]
  - TEMPERATURE INTOLERANCE [None]
  - MEMORY IMPAIRMENT [None]
  - FIBROMYALGIA [None]
  - ASTHENIA [None]
  - INFLUENZA LIKE ILLNESS [None]
  - NEURALGIA [None]
  - MUSCLE SPASMS [None]
  - DEPRESSION [None]
  - DRUG INEFFECTIVE [None]
  - FATIGUE [None]
  - PAIN IN EXTREMITY [None]
  - BALANCE DISORDER [None]
